FAERS Safety Report 8504296-6 (Version None)
Quarter: 2012Q3

REPORT INFORMATION
  Report Type: 
  Country: None (occurrence: None)
  Receive Date: 20120711
  Receipt Date: 20120427
  Transmission Date: 20120928
  Serious: No
  Sender: FDA-Public Use
  Company Number: US-MYLANLABS-2012S1008957

PATIENT
  Age: 71 Year
  Sex: Female
  Weight: 83.46 kg

DRUGS (4)
  1. NEXIUM [Concomitant]
  2. METFORMIN HCL [Concomitant]
  3. LIPITOR [Concomitant]
  4. METOPROLOL SUCCINATE EXTENDED RELEASE [Suspect]
     Indication: BLOOD PRESSURE INCREASED
     Route: 048
     Dates: start: 20100101

REACTIONS (2)
  - DYSGEUSIA [None]
  - DYSPEPSIA [None]
